FAERS Safety Report 11347896 (Version 1)
Quarter: 2015Q3

REPORT INFORMATION
  Report Type: Spontaneous
  Country: US (occurrence: US)
  Receive Date: 20150806
  Receipt Date: 20150806
  Transmission Date: 20151125
  Serious: Yes (Hospitalization, Other)
  Sender: FDA-Public Use
  Company Number: US-JNJFOC-20150803029

PATIENT
  Age: 57 Year
  Sex: Male

DRUGS (9)
  1. COREG [Concomitant]
     Active Substance: CARVEDILOL
  2. LORTAB (HYDROCODONE BITARTRATE ACETAMINOPHEN) [Concomitant]
  3. FLOMAX [Concomitant]
     Active Substance: TAMSULOSIN HYDROCHLORIDE
  4. ACYCLOVIR. [Concomitant]
     Active Substance: ACYCLOVIR
  5. AVODART [Concomitant]
     Active Substance: DUTASTERIDE
  6. LASIX [Concomitant]
     Active Substance: FUROSEMIDE
  7. ATIVAN [Concomitant]
     Active Substance: LORAZEPAM
  8. IMBRUVICA [Suspect]
     Active Substance: IBRUTINIB
     Indication: CHRONIC LYMPHOCYTIC LEUKAEMIA
     Route: 048
     Dates: start: 20140416
  9. ^NEXIUM^ [Concomitant]

REACTIONS (3)
  - Renal disorder [Not Recovered/Not Resolved]
  - Pneumonia [Unknown]
  - Fistula [Unknown]

NARRATIVE: CASE EVENT DATE: 2015
